FAERS Safety Report 4979641-9 (Version None)
Quarter: 2006Q1

REPORT INFORMATION
  Report Type: 
  Country: None (occurrence: None)
  Receive Date: 20060227
  Receipt Date: 20050915
  Transmission Date: 20060701
  Serious: Yes (Hospitalization)
  Sender: FDA-Public Use
  Company Number: DSA_27180_2005

PATIENT
  Age: 67 Year
  Sex: Male

DRUGS (6)
  1. VASOTEC [Suspect]
     Dosage: DF PO
     Route: 048
  2. ECOTRIN [Concomitant]
  3. IMDUR [Concomitant]
  4. PLAVIX [Concomitant]
  5. VIOXX [Concomitant]
  6. ZOCOR [Concomitant]

REACTIONS (2)
  - DRUG HYPERSENSITIVITY [None]
  - HEART RATE ABNORMAL [None]
